FAERS Safety Report 23405429 (Version 1)
Quarter: 2024Q1

REPORT INFORMATION
  Report Type: Spontaneous
  Country: CA (occurrence: CA)
  Receive Date: 20240116
  Receipt Date: 20240116
  Transmission Date: 20240410
  Serious: Yes (Life-Threatening)
  Sender: FDA-Public Use
  Company Number: CA-FreseniusKabi-FK202400651

PATIENT
  Age: 79 Year
  Sex: Female

DRUGS (3)
  1. MORPHINE SULFATE [Suspect]
     Active Substance: MORPHINE SULFATE
     Indication: Glossodynia
     Dosage: FORM OF ADMINISTRATION: NOT SPECIFIED
     Route: 040
  2. GRAVOL [Concomitant]
     Active Substance: DIMENHYDRINATE
     Indication: Product used for unknown indication
     Dosage: FOA: NOT SPECIFIED
  3. LIDOCAINE HYDROCHLORIDE AND EPINEPHRINE BITARTRATE [Concomitant]
     Active Substance: EPINEPHRINE BITARTRATE\LIDOCAINE HYDROCHLORIDE
     Indication: Product used for unknown indication
     Dosage: FOA: LIQUID BLOCK/INFILTRATION

REACTIONS (2)
  - Hypopnoea [Unknown]
  - Unresponsive to stimuli [Unknown]
